FAERS Safety Report 4361372-X (Version None)
Quarter: 2004Q2

REPORT INFORMATION
  Report Type: 
  Country: None (occurrence: None)
  Receive Date: 20040521
  Receipt Date: 20040506
  Transmission Date: 20050107
  Serious: Yes (Other)
  Sender: FDA-Public Use
  Company Number: PHBS2004BE06329

PATIENT
  Age: 81 Year

DRUGS (3)
  1. LAMISIL [Suspect]
     Indication: TINEA CRURIS
     Dosage: 250 MG/DAY
     Route: 048
     Dates: start: 20040401, end: 20040501
  2. LOSFERRON [Concomitant]
  3. GLUCOPHAGE [Concomitant]
     Dosage: 850 MG

REACTIONS (1)
  - PSORIASIS [None]
